FAERS Safety Report 26213123 (Version 1)
Quarter: 2025Q4

REPORT INFORMATION
  Report Type: Spontaneous
  Country: GB (occurrence: GB)
  Receive Date: 20251230
  Receipt Date: 20251230
  Transmission Date: 20260118
  Serious: Yes (Disabling, Other)
  Sender: MYLAN
  Company Number: None

PATIENT
  Age: 67 Year
  Sex: Female
  Weight: 78 kg

DRUGS (2)
  1. ATORVASTATIN [Suspect]
     Active Substance: ATORVASTATIN
     Indication: Product used for unknown indication
     Dosage: 40 MILLIGRAM
     Dates: start: 20250730, end: 20251211
  2. ROSUVASTATIN [Suspect]
     Active Substance: ROSUVASTATIN
     Indication: Product used for unknown indication
     Dosage: 5 MILLIGRAM, QOD (TAKE ONE EVERY OTHER DAY FOR 1 WEEK, THEN ONCE ...)
     Dates: start: 20251211

REACTIONS (3)
  - Muscle atrophy [Unknown]
  - Balance disorder [Unknown]
  - Mobility decreased [Unknown]
